FAERS Safety Report 9744116 (Version 1)
Quarter: 2013Q4

REPORT INFORMATION
  Report Type: Spontaneous
  Country: US (occurrence: US)
  Receive Date: 20131210
  Receipt Date: 20131210
  Transmission Date: 20140711
  Serious: Yes (Other)
  Sender: FDA-Public Use
  Company Number: US-ACTAVIS-2013-22610

PATIENT
  Sex: Female

DRUGS (2)
  1. CARBOPLATIN (WATSON LABORATORIES) [Suspect]
     Indication: OVARIAN CANCER
     Dosage: 2 COURSES
     Route: 065
  2. PACLITAXEL [Concomitant]
     Indication: OVARIAN CANCER
     Dosage: WEEKLY
     Route: 065

REACTIONS (2)
  - Renal failure chronic [Unknown]
  - Condition aggravated [Unknown]
